FAERS Safety Report 9194651 (Version 1)
Quarter: 2013Q1

REPORT INFORMATION
  Report Type: Spontaneous
  Country: US (occurrence: US)
  Receive Date: 20130328
  Receipt Date: 20130328
  Transmission Date: 20140127
  Serious: No
  Sender: FDA-Public Use
  Company Number: US-ALLERGAN-1211056US

PATIENT
  Age: 75 Year
  Sex: Female

DRUGS (5)
  1. LATISSE 0.03% [Suspect]
     Indication: GROWTH OF EYELASHES
     Dosage: 1 GTT, QHS
     Route: 061
  2. TEARS PLUS SOLUTION [Concomitant]
     Indication: DRY EYE
     Dosage: UNK, PRN
     Route: 047
  3. EYELASH CONDITIONER [Concomitant]
     Indication: PRODUCT USED FOR UNKNOWN INDICATION
     Dosage: UNK, QAM
     Route: 061
  4. PERMANENT MAKE -UP [Concomitant]
     Indication: PRODUCT USED FOR UNKNOWN INDICATION
  5. KISS EYELASH STUFF [Concomitant]
     Indication: PRODUCT USED FOR UNKNOWN INDICATION

REACTIONS (5)
  - Incorrect dose administered [Unknown]
  - Wrong technique in drug usage process [Unknown]
  - Eyelash hyperpigmentation [Not Recovered/Not Resolved]
  - Hair growth abnormal [Not Recovered/Not Resolved]
  - Drug ineffective [Unknown]
